FAERS Safety Report 8558656-8 (Version None)
Quarter: 2012Q3

REPORT INFORMATION
  Report Type: 
  Country: None (occurrence: None)
  Receive Date: 20120801
  Receipt Date: 20120730
  Transmission Date: 20120928
  Serious: Yes (Hospitalization, Other)
  Sender: FDA-Public Use
  Company Number: US-PFIZER INC-2012148664

PATIENT

DRUGS (3)
  1. LYRICA [Suspect]
     Dosage: 75 MG, UNK
  2. CELEBREX [Suspect]
     Dosage: UNK
  3. CALAN SR [Suspect]
     Dosage: 240 MG, UNK

REACTIONS (3)
  - ARTHRALGIA [None]
  - BACK PAIN [None]
  - SPINAL DISORDER [None]
